FAERS Safety Report 22756388 (Version 3)
Quarter: 2024Q1

REPORT INFORMATION
  Report Type: Report from Study
  Country: EG (occurrence: EG)
  Receive Date: 20230727
  Receipt Date: 20240220
  Transmission Date: 20240410
  Serious: Yes (Other)
  Sender: FDA-Public Use
  Company Number: EG-002147023-NVSC2021EG280475

PATIENT
  Age: 40 Year
  Sex: Male

DRUGS (10)
  1. COSENTYX [Suspect]
     Active Substance: SECUKINUMAB
     Indication: Ankylosing spondylitis
     Dosage: 150 MG (EVERY 15 DAY AS A LOADING DOSE)
     Route: 058
     Dates: start: 20211113
  2. COSENTYX [Suspect]
     Active Substance: SECUKINUMAB
     Dosage: 150 MG, QMO (MAINTANICE DOSE)
     Route: 058
  3. COSENTYX [Suspect]
     Active Substance: SECUKINUMAB
     Dosage: 1 DOSAGE FORM, Q2W (1 PREFILLED PEN EVERY 15 DAYS FOR 2 DOSES)
     Route: 065
     Dates: start: 202301
  4. COSENTYX [Suspect]
     Active Substance: SECUKINUMAB
     Dosage: 1 PREFILLED PEN EVERY 15 DAYS FOR 3  DOSES (3 PENS)
     Route: 065
  5. COSENTYX [Suspect]
     Active Substance: SECUKINUMAB
     Dosage: 1 DOSAGE FORM, QMO (1 PREFILLED PEN MONTHLY AS A MAINTENANCE DOSE)
     Route: 065
  6. RELAX [Concomitant]
     Indication: Ankylosing spondylitis
     Dosage: 10 MG, QD (ONE TABLET AND HALF DAILY)
     Route: 065
     Dates: start: 20211113
  7. RELAX [Concomitant]
     Dosage: 1 DOSAGE FORM, QD
     Route: 065
  8. ARCOXIA [Concomitant]
     Active Substance: ETORICOXIB
     Indication: Ankylosing spondylitis
     Dosage: 1 DOSAGE FORM, QD
     Route: 065
     Dates: start: 20211113
  9. ARCOXIA [Concomitant]
     Active Substance: ETORICOXIB
     Indication: Analgesic therapy
     Dosage: 1 DOSAGE FORM, PRN (DAILY)
     Route: 065
     Dates: start: 202208, end: 20230415
  10. MULTIRELAX [Concomitant]
     Indication: Muscle relaxant therapy
     Dosage: UNK, QD (F 5 MGS: 2 TABS DAILY AND IF 10 MGS: 1 TAB DAILY)
     Route: 065
     Dates: start: 202208, end: 20230415

REACTIONS (3)
  - Musculoskeletal stiffness [Not Recovered/Not Resolved]
  - Off label use [Recovering/Resolving]
  - Therapeutic product effect incomplete [Recovering/Resolving]

NARRATIVE: CASE EVENT DATE: 20211113
